FAERS Safety Report 20286416 (Version 1)
Quarter: 2022Q1

REPORT INFORMATION
  Report Type: Spontaneous
  Country: CN (occurrence: CN)
  Receive Date: 20220103
  Receipt Date: 20220103
  Transmission Date: 20220424
  Serious: Yes (Other)
  Sender: FDA-Public Use
  Company Number: CN-BAXTER-2021BAX042543

PATIENT
  Age: 5 Year
  Sex: Female
  Weight: 17 kg

DRUGS (7)
  1. CYCLOPHOSPHAMIDE [Suspect]
     Active Substance: CYCLOPHOSPHAMIDE
     Indication: Lymphocytic leukaemia
     Dosage: CYCLOPHOSPHAMIDE 0.72G + 0.9% SODIUM CHLORIDE INJECTION 250ML
     Route: 041
     Dates: start: 20211207, end: 20211207
  2. SODIUM CHLORIDE [Suspect]
     Active Substance: SODIUM CHLORIDE
     Indication: Medication dilution
     Dosage: CYCLOPHOSPHAMIDE 0.72G + 0.9% SODIUM CHLORIDE INJECTION 250ML
     Route: 041
     Dates: start: 20211207, end: 20211207
  3. SODIUM CHLORIDE [Suspect]
     Active Substance: SODIUM CHLORIDE
     Dosage: CYTARABINE 0.027G + 0.9% SODIUM CHLORIDE INJECTION 1ML
     Route: 058
     Dates: start: 20211207, end: 20211211
  4. SODIUM CHLORIDE [Suspect]
     Active Substance: SODIUM CHLORIDE
     Dosage: CYTARABINE 0.027G + 0.9% SODIUM CHLORIDE INJECTION 1ML
     Route: 058
     Dates: start: 20211214, end: 20211217
  5. CYTARABINE [Suspect]
     Active Substance: CYTARABINE
     Indication: Lymphocytic leukaemia
     Dosage: CYTARABINE 0.027G + 0.9% SODIUM CHLORIDE INJECTION 1ML
     Route: 058
     Dates: start: 20211207, end: 20211211
  6. CYTARABINE [Suspect]
     Active Substance: CYTARABINE
     Dosage: CYTARABINE 0.027G + 0.9% SODIUM CHLORIDE INJECTION 1ML
     Route: 058
     Dates: start: 20211214, end: 20211217
  7. MERCAPTOPURINE [Suspect]
     Active Substance: MERCAPTOPURINE
     Indication: Lymphocytic leukaemia
     Dosage: QN
     Route: 048
     Dates: start: 20211207, end: 20211220

REACTIONS (1)
  - Myelosuppression [Recovering/Resolving]

NARRATIVE: CASE EVENT DATE: 20211218
